FAERS Safety Report 8379795-0 (Version None)
Quarter: 2012Q2

REPORT INFORMATION
  Report Type: 
  Country: None (occurrence: None)
  Receive Date: 20120523
  Receipt Date: 20120518
  Transmission Date: 20120825
  Serious: Yes (Hospitalization)
  Sender: FDA-Public Use
  Company Number: US-SANOFI-AVENTIS-2012SA035717

PATIENT
  Sex: Female

DRUGS (2)
  1. LOVENOX [Suspect]
     Route: 065
     Dates: start: 20120501
  2. LOVENOX [Suspect]
     Indication: PULMONARY EMBOLISM
     Route: 065
     Dates: start: 20120501

REACTIONS (5)
  - HEART RATE INCREASED [None]
  - MATERNAL EXPOSURE DURING PREGNANCY [None]
  - HYPOKALAEMIA [None]
  - DYSPNOEA [None]
  - CHEST PAIN [None]
